FAERS Safety Report 15105407 (Version 1)
Quarter: 2018Q3

REPORT INFORMATION
  Report Type: Report from Study
  Country: FR (occurrence: FR)
  Receive Date: 20180704
  Receipt Date: 20180704
  Transmission Date: 20181010
  Serious: Yes (Other)
  Sender: FDA-Public Use
  Company Number: FR-TEVA-2018-FR-919201

PATIENT
  Age: 14 Year
  Sex: Male

DRUGS (7)
  1. IFOSFAMIDE. [Interacting]
     Active Substance: IFOSFAMIDE
     Indication: OSTEOSARCOMA
     Dosage: 3?HOUR INFUSION OF 3G/M2 DAILY FROM DAY 1 TO DAY 4 (WEEKS 4 AND 9) IN 13?WEEK CHEMOTHERAPY;ON DAY 12
     Route: 050
  2. METHOTREXATE. [Concomitant]
     Active Substance: METHOTREXATE
     Indication: OSTEOSARCOMA
     Dosage: 4?HOUR INFUSION OF 12 G/M2/DAY ONCE A WEEK (WEEKS 1, 2, 3, 7, 8, 12, 13)
     Route: 050
  3. UROMITEXAN [Concomitant]
     Active Substance: MESNA
     Indication: ADJUVANT THERAPY
     Dosage: 3.6 G/M2/DAY FROM DAY 1 TO DAY 4 (WEEKS 4 AND 9) IN A 13?WEEK CHEMOTHERAPY; ADMINISTERED ON DAY 12
     Route: 065
  4. MORPHINE [Concomitant]
     Active Substance: MORPHINE
     Indication: PRODUCT USED FOR UNKNOWN INDICATION
     Route: 065
  5. ONDANSETRON [Suspect]
     Active Substance: ONDANSETRON
     Indication: PROPHYLAXIS OF NAUSEA AND VOMITING
     Route: 065
  6. ETOPOSIDE. [Concomitant]
     Active Substance: ETOPOSIDE
     Indication: OSTEOSARCOMA
     Dosage: 75 MG/M2/DAY FROM DAY 1 TO DAY 4 (WEEKS 4 AND 9) IN A 13?WEEK CHEMOTHERAPY; ADMINISTERED ON DAY 12
     Route: 065
  7. TRAMADOL. [Interacting]
     Active Substance: TRAMADOL
     Indication: PRODUCT USED FOR UNKNOWN INDICATION
     Route: 065

REACTIONS (2)
  - Drug interaction [Recovered/Resolved]
  - Encephalopathy [Recovered/Resolved]
